FAERS Safety Report 8867037 (Version 1)
Quarter: 2012Q4

REPORT INFORMATION
  Report Type: 
  Country: US (occurrence: US)
  Receive Date: 20121025
  Receipt Date: 20121025
  Transmission Date: 20130627
  Serious: No
  Sender: FDA-Public Use
  Company Number: US-AMGEN-USASP2012014743

PATIENT
  Age: 62 Year
  Sex: Female

DRUGS (10)
  1. ENBREL [Suspect]
     Indication: PRODUCT USED FOR UNKNOWN INDICATION
     Dosage: 50 mg, qwk
     Route: 058
  2. LISINOPRIL [Concomitant]
     Dosage: 20 mg, UNK
  3. TRAMADOL HCL [Concomitant]
     Dosage: 50 mg, UNK
  4. METOPROLOL TARTRATE [Concomitant]
     Dosage: 25 mg, UNK
  5. DICLOFENAC [Concomitant]
     Dosage: 25 mg, UNK
  6. LEVOTHYROXIN [Concomitant]
     Dosage: 50 mug, UNK
  7. VITAMIN C                          /00008001/ [Concomitant]
     Dosage: 500 mg, UNK
  8. VITAMIN D /00107901/ [Concomitant]
  9. GLUCOSAMINE + CHONDROITIN [Concomitant]
  10. PROBIOTIC [Concomitant]

REACTIONS (1)
  - Upper respiratory tract infection [Unknown]
